FAERS Safety Report 17626535 (Version 2)
Quarter: 2020Q2

REPORT INFORMATION
  Report Type: Spontaneous
  Country: US (occurrence: US)
  Receive Date: 20200404
  Receipt Date: 20200619
  Transmission Date: 20200713
  Serious: Yes (Hospitalization, Other)
  Sender: FDA-Public Use
  Company Number: US-NOVOPROD-721193

PATIENT
  Age: 56 Year
  Sex: Female
  Weight: 87 kg

DRUGS (2)
  1. LEVEMIR [Suspect]
     Active Substance: INSULIN DETEMIR
     Indication: DIABETES MELLITUS
     Dosage: 21 IU, BID
     Route: 058
     Dates: start: 20130611
  2. LEVEMIR [Suspect]
     Active Substance: INSULIN DETEMIR
     Dosage: UNK UNK, BID
     Route: 058

REACTIONS (2)
  - Product dose omission [Recovered/Resolved]
  - Diabetic ketoacidotic hyperglycaemic coma [Recovered/Resolved]

NARRATIVE: CASE EVENT DATE: 20191210
